FAERS Safety Report 6824980-X (Version None)
Quarter: 2010Q3

REPORT INFORMATION
  Report Type: 
  Country: None (occurrence: None)
  Receive Date: 20100708
  Receipt Date: 20070315
  Transmission Date: 20110219
  Serious: No
  Sender: FDA-Public Use
  Company Number: US-PFIZER INC-2007002497

PATIENT
  Sex: Male
  Weight: 77.11 kg

DRUGS (7)
  1. CHANTIX [Suspect]
     Indication: SMOKING CESSATION THERAPY
     Route: 048
     Dates: start: 20070102
  2. PLAVIX [Concomitant]
  3. CLONAZEPAM [Concomitant]
  4. CELEXA [Concomitant]
  5. FOLIC ACID [Concomitant]
  6. AMITRIPTYLINE [Concomitant]
  7. ACIPHEX [Concomitant]

REACTIONS (2)
  - LIP PAIN [None]
  - PARAESTHESIA ORAL [None]
